FAERS Safety Report 6626063-0 (Version None)
Quarter: 2010Q1

REPORT INFORMATION
  Report Type: 
  Country: None (occurrence: None)
  Receive Date: 20100310
  Receipt Date: 20100302
  Transmission Date: 20100710
  Serious: No
  Sender: FDA-Public Use
  Company Number: A0844040A

PATIENT
  Age: 19 Year
  Sex: Female

DRUGS (2)
  1. ADVAIR DISKUS 100/50 [Suspect]
     Indication: ASTHMA
     Dosage: 1PUFF TWICE PER DAY
     Route: 055
     Dates: start: 20100201, end: 20100208
  2. NO CONCURRENT MEDICATION [Concomitant]

REACTIONS (1)
  - HERPES ZOSTER [None]
